FAERS Safety Report 10397009 (Version 1)
Quarter: 2014Q3

REPORT INFORMATION
  Report Type: Report from Study
  Country: BR (occurrence: BR)
  Receive Date: 20140820
  Receipt Date: 20140820
  Transmission Date: 20150326
  Serious: Yes (Death, Hospitalization, Other)
  Sender: FDA-Public Use
  Company Number: PHHY2014BR103649

PATIENT
  Sex: Female
  Weight: 55 kg

DRUGS (1)
  1. FORASEQ [Suspect]
     Active Substance: BUDESONIDE\FORMOTEROL FUMARATE
     Indication: CHRONIC OBSTRUCTIVE PULMONARY DISEASE
     Dosage: UNK UKN, BID (IN THE MORNING AND AT NIGHT)
     Route: 055
     Dates: end: 201407

REACTIONS (5)
  - Hydrocephalus [Fatal]
  - Respiratory failure [Fatal]
  - Lung disorder [Fatal]
  - Chronic obstructive pulmonary disease [Fatal]
  - Nosocomial infection [Fatal]
